FAERS Safety Report 4443052-5 (Version None)
Quarter: 2004Q3

REPORT INFORMATION
  Report Type: 
  Country: None (occurrence: None)
  Receive Date: 20040903
  Receipt Date: 20040628
  Transmission Date: 20050211
  Serious: Yes (Other)
  Sender: FDA-Public Use
  Company Number: 2004UW13444

PATIENT
  Age: 57 Year
  Sex: Female

DRUGS (3)
  1. CRESTOR [Suspect]
     Dosage: 10 MG PO
     Route: 048
     Dates: end: 20040521
  2. CRESTOR [Suspect]
     Dosage: 20 MG PO
     Route: 048
     Dates: start: 20040521
  3. TRICOR [Concomitant]

REACTIONS (4)
  - BLOOD CREATINE PHOSPHOKINASE INCREASED [None]
  - BLOOD GLUCOSE INCREASED [None]
  - MUSCLE SPASMS [None]
  - MYALGIA [None]
